FAERS Safety Report 5020524-6 (Version None)
Quarter: 2006Q2

REPORT INFORMATION
  Report Type: 
  Country: None (occurrence: None)
  Receive Date: 20060606
  Receipt Date: 20060606
  Transmission Date: 20061013
  Serious: Yes (Disabling)
  Sender: FDA-Public Use
  Company Number: None

PATIENT
  Age: 7 Year
  Sex: Female

DRUGS (4)
  1. ZONISAMIDE [Suspect]
     Indication: CONVULSION
     Dosage: 1 CAPSULE EVERYMORNING AND 1 CAPSULE EVERY EVENING
     Dates: start: 20060330
  2. POLYETHYLENE GLYCOL [Concomitant]
  3. NASONEX [Concomitant]
  4. KEPPRA [Concomitant]

REACTIONS (2)
  - CONVULSION [None]
  - PHARMACEUTICAL PRODUCT COMPLAINT [None]
